FAERS Safety Report 4891117-6 (Version None)
Quarter: 2006Q1

REPORT INFORMATION
  Report Type: 
  Country: None (occurrence: None)
  Receive Date: 20060123
  Receipt Date: 20060113
  Transmission Date: 20060701
  Serious: Yes (Disabling)
  Sender: FDA-Public Use
  Company Number: FRWYE297513JAN06

PATIENT
  Sex: Male

DRUGS (2)
  1. EFFEXOR [Suspect]
     Dosage: A TOTAL OF 2 TABLETS DAILY; TRANSPLACENTAL
     Route: 064
  2. TRANXENE [Suspect]
     Dosage: A TOTAL OF 3 TABLETS DAILY; TRANSPLACENTAL
     Route: 064

REACTIONS (8)
  - CONGENITAL MUSCULOSKELETAL ANOMALY [None]
  - CONGENITAL NOSE MALFORMATION [None]
  - DRUG EXPOSURE DURING PREGNANCY [None]
  - FACIAL DYSMORPHISM [None]
  - HIGH ARCHED PALATE [None]
  - PREMATURE BABY [None]
  - PULMONARY VALVE STENOSIS CONGENITAL [None]
  - VENTRICULAR SEPTAL DEFECT [None]
